FAERS Safety Report 9840084 (Version 1)
Quarter: 2014Q1

REPORT INFORMATION
  Report Type: Spontaneous
  Country: US (occurrence: US)
  Receive Date: 20140124
  Receipt Date: 20140124
  Transmission Date: 20141002
  Serious: Yes (Hospitalization, Other)
  Sender: FDA-Public Use
  Company Number: US-SHIRE-ALL1-2014-00412

PATIENT
  Sex: Male
  Weight: 77.1 kg

DRUGS (1)
  1. LIALDA [Suspect]
     Indication: CROHN^S DISEASE
     Dosage: 2.4 G, 1X/DAY:QD (TWO 1.2 G TABLETS)
     Route: 048

REACTIONS (4)
  - Intestinal obstruction [Unknown]
  - Colitis [Recovered/Resolved]
  - Medication residue present [Not Recovered/Not Resolved]
  - Off label use [Not Recovered/Not Resolved]
